FAERS Safety Report 5156852-3 (Version None)
Quarter: 2006Q4

REPORT INFORMATION
  Report Type: 
  Country: None (occurrence: None)
  Receive Date: 20061115
  Receipt Date: 20061102
  Transmission Date: 20070319
  Serious: Yes (Hospitalization)
  Sender: FDA-Public Use
  Company Number: 2006131235

PATIENT
  Age: 66 Year
  Sex: Male
  Weight: 61 kg

DRUGS (10)
  1. SUTENT [Suspect]
     Indication: RENAL CELL CARCINOMA STAGE UNSPECIFIED
     Dosage: 50 MG (50 MG, DAILY), ORAL
     Route: 048
  2. SIMVASTATIN [Concomitant]
  3. COAPROVEL (HYDROCHLOROTHIAZIDE, IRBESARTAN) [Concomitant]
  4. ATARAX [Concomitant]
  5. NEXIUM [Concomitant]
  6. NOCTRAN 10 (ACEPROMAZINE, ACEPROMETAZINE, CLORAZEPATE DIPOTASSIUM) [Concomitant]
  7. PREDNISOLONE [Concomitant]
  8. GURONSAN (ASCORBIC ACID, CAFFEINE, GLUCURONAMIDE) [Concomitant]
  9. LANTUS [Concomitant]
  10. NOVORAPID (INSULIN ASPART) [Concomitant]

REACTIONS (5)
  - ASTHENIA [None]
  - DIABETIC COMPLICATION [None]
  - HAEMORRHAGE [None]
  - NAIL DISORDER [None]
  - RECTAL HAEMORRHAGE [None]
